FAERS Safety Report 20516005 (Version 3)
Quarter: 2023Q1

REPORT INFORMATION
  Report Type: Report from Study
  Country: AU (occurrence: AU)
  Receive Date: 20220225
  Receipt Date: 20230105
  Transmission Date: 20230417
  Serious: Yes (Other)
  Sender: FDA-Public Use
  Company Number: AU-NOVARTISPH-NVSC2021AU248276

PATIENT
  Sex: Female

DRUGS (1)
  1. MAYZENT [Suspect]
     Active Substance: SIPONIMOD
     Indication: Secondary progressive multiple sclerosis
     Dosage: 2 MG, QD
     Route: 048
     Dates: start: 20210524

REACTIONS (12)
  - Cellulitis [Not Recovered/Not Resolved]
  - Intestinal obstruction [Unknown]
  - Abdominal pain upper [Unknown]
  - Vomiting [Unknown]
  - Gait disturbance [Unknown]
  - Depressed mood [Unknown]
  - Hypokinesia [Unknown]
  - Mobility decreased [Unknown]
  - Limb injury [Not Recovered/Not Resolved]
  - Ovarian cyst [Unknown]
  - Fatigue [Unknown]
  - White blood cell count decreased [Unknown]

NARRATIVE: CASE EVENT DATE: 20210101
